FAERS Safety Report 6196923-6 (Version None)
Quarter: 2009Q2

REPORT INFORMATION
  Report Type: 
  Country: None (occurrence: None)
  Receive Date: 20090520
  Receipt Date: 20090512
  Transmission Date: 20091009
  Serious: Yes (Death, Other)
  Sender: FDA-Public Use
  Company Number: US-BAYER-200911495BCC

PATIENT

DRUGS (1)
  1. ASPIRIN [Suspect]
     Indication: DRUG USE FOR UNKNOWN INDICATION
     Dosage: ^TOOK 60 ASPIRIN^
     Dates: start: 20090510

REACTIONS (2)
  - ALTERED STATE OF CONSCIOUSNESS [None]
  - DEATH [None]
